FAERS Safety Report 20872878 (Version 4)
Quarter: 2024Q2

REPORT INFORMATION
  Report Type: Report from Study
  Country: BY (occurrence: BY)
  Receive Date: 20220525
  Receipt Date: 20240507
  Transmission Date: 20240716
  Serious: Yes (Hospitalization, Other)
  Sender: FDA-Public Use
  Company Number: BY-MYLANLABS-2022M1033273

PATIENT
  Age: 63 Year
  Sex: Female
  Weight: 69 kg

DRUGS (15)
  1. PRETOMANID [Suspect]
     Active Substance: PRETOMANID
     Indication: Product used for unknown indication
     Dosage: 200 MILLIGRAM, QD (200 MG OD PO), START 02-MAR-2022
     Route: 048
     Dates: start: 20220302, end: 20220824
  2. BEDAQUILINE [Suspect]
     Active Substance: BEDAQUILINE
     Indication: Product used for unknown indication
     Dosage: 200 MILLIGRAM, 3XW (200 MG TIW PO)
     Route: 048
     Dates: start: 20220203, end: 20220824
  3. CLOFAZIMINE [Suspect]
     Active Substance: CLOFAZIMINE
     Indication: Product used for unknown indication
     Dosage: 100 MILLIGRAM, QD (100 MG OD PO)
     Route: 048
     Dates: start: 20220208, end: 20220301
  4. LINEZOLID [Suspect]
     Active Substance: LINEZOLID
     Indication: Product used for unknown indication
     Dosage: 600 MILLIGRAM, QD (600 MG OD PO)
     Route: 048
     Dates: start: 20220208
  5. LINEZOLID [Suspect]
     Active Substance: LINEZOLID
     Dosage: 300 MILLIGRAM, QD (300 MG OD PO)
     Route: 048
     Dates: start: 20220309, end: 20220418
  6. LEVOFLOXACIN [Suspect]
     Active Substance: LEVOFLOXACIN
     Indication: Product used for unknown indication
     Dosage: 1000 MILLIGRAM, QD (1000 MG OD PO)
     Route: 048
     Dates: start: 20220208, end: 20220301
  7. CYCLOSERINE [Suspect]
     Active Substance: CYCLOSERINE
     Indication: Product used for unknown indication
     Dosage: 750 MILLIGRAM, QD (750 MG OD PO)
     Route: 048
     Dates: start: 20220208, end: 20220301
  8. MOXIFLOXACIN [Suspect]
     Active Substance: MOXIFLOXACIN
     Indication: Product used for unknown indication
     Dosage: 400 MILLIGRAM, QD (400 MG OD PO), START 02-MAR-2022
     Route: 048
     Dates: start: 20220302, end: 20220824
  9. ABACAVIR\LAMIVUDINE [Concomitant]
     Active Substance: ABACAVIR\LAMIVUDINE
     Dosage: 300/500 MG, QD
     Route: 048
     Dates: start: 20220214
  10. DOLUTEGRAVIR [Concomitant]
     Active Substance: DOLUTEGRAVIR
     Dosage: 50 MILLIGRAM, QD
     Route: 048
     Dates: start: 20220204
  11. PANTOPRAZOLE [Concomitant]
     Active Substance: PANTOPRAZOLE
     Indication: Prophylaxis
     Dosage: 40 MILLIGRAM, QD
     Route: 048
     Dates: start: 20220214
  12. PYRIDOXINE [Concomitant]
     Active Substance: PYRIDOXINE
     Indication: Prophylaxis
     Dosage: 50 MILLIGRAM, QD
     Route: 048
     Dates: start: 20220208
  13. NADROPARIN CALCIUM [Concomitant]
     Active Substance: NADROPARIN CALCIUM
     Indication: Prophylaxis
     Dosage: 0.3 MILLILITER, QD
     Route: 065
     Dates: start: 20220202
  14. TENOFOVIR [Concomitant]
     Active Substance: TENOFOVIR
     Dosage: 200/300 MG 1 TIME, QD
     Route: 065
     Dates: start: 20220204, end: 20220214
  15. SULFAMETHOXAZOLE\TRIMETHOPRIM [Concomitant]
     Active Substance: SULFAMETHOXAZOLE\TRIMETHOPRIM
     Dosage: 480 MILLIGRAM, QD
     Route: 065
     Dates: start: 20220209

REACTIONS (4)
  - Acute kidney injury [Unknown]
  - Hospitalisation [Unknown]
  - Anaemia [Recovered/Resolved]
  - Diarrhoea [Unknown]

NARRATIVE: CASE EVENT DATE: 20220224
